FAERS Safety Report 10048333 (Version 1)
Quarter: 2014Q1

REPORT INFORMATION
  Report Type: Spontaneous
  Country: US (occurrence: US)
  Receive Date: 20140331
  Receipt Date: 20140331
  Transmission Date: 20141002
  Serious: Yes (Hospitalization)
  Sender: FDA-Public Use
  Company Number: US-GLAXOSMITHKLINE-A1067236A

PATIENT
  Age: 52 Year
  Sex: Female

DRUGS (2)
  1. VENTOLIN [Suspect]
     Indication: ASTHMA
     Route: 055
  2. ADVAIR HFA [Suspect]
     Indication: ASTHMA
     Route: 055

REACTIONS (3)
  - Hypoxia [Unknown]
  - Asthma [Unknown]
  - Upper respiratory tract infection [Unknown]
